FAERS Safety Report 6358232-1 (Version None)
Quarter: 2009Q3

REPORT INFORMATION
  Report Type: 
  Country: None (occurrence: None)
  Receive Date: 20090911
  Receipt Date: 20090901
  Transmission Date: 20100115
  Serious: Yes (Other)
  Sender: FDA-Public Use
  Company Number: ADR18372009

PATIENT
  Age: 80 Year
  Sex: Female

DRUGS (2)
  1. SIMVASTATIN [Suspect]
  2. MICARDIS PLUS (TELMISARTAN-HCTZ) [Concomitant]

REACTIONS (3)
  - COGNITIVE DISORDER [None]
  - JOINT SWELLING [None]
  - MYALGIA [None]
